FAERS Safety Report 8986129 (Version 1)
Quarter: 2012Q4

REPORT INFORMATION
  Report Type: Spontaneous
  Country: TH (occurrence: None)
  Receive Date: 20121010
  Receipt Date: 20121010
  Transmission Date: 20130627
  Serious: Yes (Other)
  Sender: FDA-Public Use
  Company Number: 218992

PATIENT
  Sex: Female
  Weight: 65.7 kg

DRUGS (1)
  1. INNOHEP (TINZAPARIN SODIUM) [Suspect]
     Indication: DVT
     Route: 058
     Dates: start: 20120713

REACTIONS (4)
  - Hypoaesthesia [None]
  - Discomfort [None]
  - Pain in extremity [None]
  - Incorrect drug administration duration [None]
